FAERS Safety Report 10005223 (Version 2)
Quarter: 2014Q2

REPORT INFORMATION
  Report Type: Report from Study
  Country: US (occurrence: US)
  Receive Date: 20140312
  Receipt Date: 20140403
  Transmission Date: 20141212
  Serious: Yes (Hospitalization)
  Sender: FDA-Public Use
  Company Number: US-ABBVIE-14P-163-1209028-00

PATIENT
  Age: 60 Year
  Sex: Female

DRUGS (13)
  1. HUMIRA [Suspect]
     Indication: CROHN^S DISEASE
     Dates: start: 201301
  2. METFORMIN [Concomitant]
     Indication: DIABETES MELLITUS
  3. NOVALOG [Concomitant]
     Indication: PRODUCT USED FOR UNKNOWN INDICATION
     Dosage: SLIDING SCALE
  4. LEVEMIR [Concomitant]
     Indication: DIABETES MELLITUS
     Dosage: QPM
  5. BYSTOLIC [Concomitant]
     Indication: HYPERTENSION
     Dosage: 1 QAM, 1 QPM
  6. CYMBALTA [Concomitant]
     Indication: PAIN
     Dosage: 1 QAM, 1 QPM
  7. DICLOFENAC [Concomitant]
     Indication: PAIN
  8. IRON [Concomitant]
     Indication: PRODUCT USED FOR UNKNOWN INDICATION
  9. GABAPENTIN [Concomitant]
     Indication: PAIN
     Dosage: 1QAM, 1 LUNCH, 2 QPM
  10. GABAPENTIN [Concomitant]
     Indication: MUSCLE SPASMS
  11. PREDNISONE [Concomitant]
     Indication: PRODUCT USED FOR UNKNOWN INDICATION
     Dosage: WEANING FROM 40MG
  12. XANAX [Concomitant]
     Indication: PRODUCT USED FOR UNKNOWN INDICATION
  13. TIZANIDINE [Concomitant]
     Indication: MUSCLE SPASMS

REACTIONS (5)
  - Neck surgery [Recovered/Resolved]
  - Faecal incontinence [Recovered/Resolved]
  - Drug effect decreased [Not Recovered/Not Resolved]
  - Diarrhoea [Recovered/Resolved]
  - Abdominal pain [Recovered/Resolved]
